FAERS Safety Report 11365642 (Version 3)
Quarter: 2015Q4

REPORT INFORMATION
  Report Type: Spontaneous
  Country: BR (occurrence: BR)
  Receive Date: 20150811
  Receipt Date: 20151116
  Transmission Date: 20160304
  Serious: Yes (Life-Threatening)
  Sender: FDA-Public Use
  Company Number: BR-ABBVIE-15P-020-1442814-00

PATIENT
  Age: 66 Year
  Sex: Female
  Weight: 86 kg

DRUGS (7)
  1. SYNTHROID [Suspect]
     Active Substance: LEVOTHYROXINE SODIUM
     Route: 048
     Dates: start: 201508
  2. METICORTEN [Concomitant]
     Active Substance: PREDNISONE
     Indication: HYPERSENSITIVITY
     Dosage: DAILY DOSE: 40 MG IN THE MORNING
     Route: 048
     Dates: start: 20150801
  3. SYNTHROID [Suspect]
     Active Substance: LEVOTHYROXINE SODIUM
     Route: 048
     Dates: start: 201508, end: 201508
  4. SYNTHROID [Suspect]
     Active Substance: LEVOTHYROXINE SODIUM
     Indication: HYPOTHYROIDISM
     Dosage: DAILY DOSE: 75 MCG IN THE MORNING
     Route: 048
     Dates: start: 2009, end: 20150804
  5. ALLEGRA [Concomitant]
     Active Substance: FEXOFENADINE HYDROCHLORIDE
     Indication: HYPERSENSITIVITY
     Dosage: DAILY DOSE: 120 MG AT NIGHT
     Route: 048
     Dates: start: 20150801
  6. IODINE [Suspect]
     Active Substance: IODINE
     Indication: COMPUTERISED TOMOGRAM
     Route: 065
     Dates: start: 20150803
  7. ENAPROTEC [Concomitant]
     Indication: HYPERTENSION
     Dosage: MORNING AND NIGHT (DAILY DOSE: 20 MG)
     Route: 048
     Dates: start: 2010

REACTIONS (4)
  - Hypersensitivity [Recovered/Resolved]
  - Thyroxine increased [Unknown]
  - Anti-thyroid antibody positive [Unknown]
  - Laryngeal obstruction [Recovered/Resolved]

NARRATIVE: CASE EVENT DATE: 201508
